FAERS Safety Report 6185427-2 (Version None)
Quarter: 2009Q2

REPORT INFORMATION
  Report Type: 
  Country: None (occurrence: None)
  Receive Date: 20090511
  Receipt Date: 20090504
  Transmission Date: 20091009
  Serious: Yes (Hospitalization, Other)
  Sender: FDA-Public Use
  Company Number: US-ABBOTT-09P-163-0571387-00

PATIENT
  Sex: Male
  Weight: 66.738 kg

DRUGS (15)
  1. HUMIRA [Suspect]
     Indication: CROHN'S DISEASE
     Route: 058
     Dates: start: 20070926, end: 20080101
  2. HUMIRA [Suspect]
     Route: 058
     Dates: start: 20090502
  3. HUMIRA [Suspect]
  4. HUMIRA [Suspect]
     Indication: CROHN'S DISEASE
     Route: 058
     Dates: start: 20080101, end: 20080506
  5. CALCIUM D [Concomitant]
     Indication: MINERAL SUPPLEMENTATION
  6. FOLIC ACID [Concomitant]
     Indication: CROHN'S DISEASE
  7. FERROUS SULFATE TAB [Concomitant]
     Indication: ANAEMIA
  8. SIMVASTATIN [Concomitant]
     Indication: BLOOD CHOLESTEROL INCREASED
  9. ATENOLOL [Concomitant]
     Indication: HYPERTENSION
     Route: 048
  10. ENTERIC ASPIRIN [Concomitant]
     Indication: CARDIOVASCULAR EVENT PROPHYLAXIS
     Route: 048
  11. PLAVIX [Concomitant]
     Indication: CORONARY ARTERIAL STENT INSERTION
     Route: 048
     Dates: start: 20070101
  12. ZOPIDEM [Concomitant]
     Indication: INSOMNIA
  13. LOPERAMIDE HCL [Concomitant]
     Indication: CROHN'S DISEASE
  14. TYLENOL [Concomitant]
     Indication: PAIN
  15. TYLENOL [Concomitant]
     Indication: PYREXIA

REACTIONS (5)
  - FISTULA [None]
  - INCISION SITE OEDEMA [None]
  - INCISIONAL DRAINAGE [None]
  - INJECTION SITE IRRITATION [None]
  - STAPHYLOCOCCAL INFECTION [None]
